FAERS Safety Report 6972711-5 (Version None)
Quarter: 2010Q3

REPORT INFORMATION
  Report Type: 
  Country: None (occurrence: None)
  Receive Date: 20100909
  Receipt Date: 20100406
  Transmission Date: 20110219
  Serious: No
  Sender: FDA-Public Use
  Company Number: US-KINGPHARMUSA00001-K201000405

PATIENT
  Sex: Female
  Weight: 51.701 kg

DRUGS (13)
  1. CYTOMEL [Suspect]
     Indication: HYPOTHYROIDISM
     Dosage: 5 MCG, QD
     Route: 048
     Dates: start: 20100227, end: 20100312
  2. CYTOMEL [Suspect]
     Dosage: 10 MCG, QD
     Route: 048
     Dates: start: 20100313, end: 20100314
  3. CYTOMEL [Suspect]
     Dosage: 5 MCG, QD
     Route: 048
     Dates: start: 20100317, end: 20100321
  4. CYTOMEL [Suspect]
     Dosage: 10 MCG, QD
     Route: 048
     Dates: start: 20100322, end: 20100322
  5. CYTOMEL [Suspect]
     Dosage: 2.5 MCG, QD
     Route: 048
     Dates: start: 20100323, end: 20100404
  6. CYTOMEL [Suspect]
     Dosage: 5 MCG, QD
     Route: 048
     Dates: start: 20100405, end: 20100405
  7. CYTOMEL [Suspect]
     Dosage: 2.5 MCG, QD
     Route: 048
     Dates: start: 20100406
  8. THYROID [Concomitant]
     Indication: HYPOTHYROIDISM
     Dosage: 2.5 G, QD
     Route: 048
     Dates: end: 20100304
  9. THYROID [Concomitant]
     Dosage: 2.25 G, QD
     Route: 048
     Dates: start: 20100304
  10. SAM-E [Concomitant]
     Dosage: UNK
  11. HORMONES NOS [Concomitant]
     Dosage: UNK
     Route: 062
  12. FOLIC ACID [Concomitant]
     Dosage: UNK
  13. VITAMIN B-12 [Concomitant]
     Dosage: UNK

REACTIONS (2)
  - DISTURBANCE IN ATTENTION [None]
  - NAUSEA [None]
